FAERS Safety Report 5579700-6 (Version None)
Quarter: 2008Q1

REPORT INFORMATION
  Report Type: 
  Country: None (occurrence: None)
  Receive Date: 20080102
  Receipt Date: 20071227
  Transmission Date: 20080703
  Serious: Yes (Other)
  Sender: FDA-Public Use
  Company Number: JP-BOEHRINGER INGELHEIM PHARMACEUTICALS, INC.-2007-BP-26608YA

PATIENT
  Age: 83 Year
  Sex: Male
  Weight: 55 kg

DRUGS (10)
  1. TAMSULOSIN HCL [Suspect]
     Indication: BENIGN PROSTATIC HYPERPLASIA
     Route: 048
     Dates: start: 20071210, end: 20071214
  2. TORSEMIDE [Suspect]
     Route: 048
     Dates: start: 20071125, end: 20071217
  3. LASIX [Suspect]
     Indication: CARDIAC FAILURE CONGESTIVE
     Route: 042
     Dates: start: 20071119, end: 20071124
  4. TAKEPRON [Suspect]
     Route: 048
     Dates: start: 20071123, end: 20071126
  5. NITROGLYCERIN [Concomitant]
     Dates: start: 20071119, end: 20071122
  6. HANP [Concomitant]
     Dates: start: 20071119, end: 20071124
  7. PACETCOOL [Concomitant]
     Dates: start: 20071119, end: 20071126
  8. OMEPRAL [Concomitant]
     Dates: start: 20071119, end: 20071122
  9. CEFOPERAZONE SODIUM/SULBACTAM SODIUM [Concomitant]
     Dates: start: 20071128, end: 20071203
  10. CLINDAMYCIN PHOSPHATE [Concomitant]
     Dates: start: 20071129, end: 20071203

REACTIONS (1)
  - PANCYTOPENIA [None]
